FAERS Safety Report 21667415 (Version 2)
Quarter: 2023Q1

REPORT INFORMATION
  Report Type: Report from Study
  Country: US (occurrence: US)
  Receive Date: 20221201
  Receipt Date: 20230315
  Transmission Date: 20230417
  Serious: Yes (Other)
  Sender: FDA-Public Use
  Company Number: US-ABBVIE-4208389

PATIENT
  Sex: Female

DRUGS (2)
  1. HUMIRA [Suspect]
     Active Substance: ADALIMUMAB
     Indication: Ankylosing spondylitis
     Route: 058
  2. HUMIRA [Suspect]
     Active Substance: ADALIMUMAB
     Route: 058
     Dates: start: 202203

REACTIONS (7)
  - Nasal septum deviation [Unknown]
  - Dyspnoea [Not Recovered/Not Resolved]
  - Bronchitis [Recovered/Resolved]
  - Sinusitis [Not Recovered/Not Resolved]
  - Asthma [Not Recovered/Not Resolved]
  - Nasal polyps [Unknown]
  - Sinus polyp [Unknown]

NARRATIVE: CASE EVENT DATE: 20220101
